FAERS Safety Report 13838241 (Version 1)
Quarter: 2017Q3

REPORT INFORMATION
  Report Type: Spontaneous
  Country: US (occurrence: US)
  Receive Date: 20170807
  Receipt Date: 20170807
  Transmission Date: 20171127
  Serious: No
  Sender: FDA-Public Use
  Company Number: US-CELGENEUS-USA-20170801322

PATIENT
  Sex: Female
  Weight: 45.4 kg

DRUGS (2)
  1. THALOMID [Suspect]
     Active Substance: THALIDOMIDE
     Indication: CHRONIC GRAFT VERSUS HOST DISEASE
     Dosage: 100 MILLIGRAM
     Route: 048
     Dates: start: 201011
  2. THALOMID [Suspect]
     Active Substance: THALIDOMIDE
     Indication: BONE MARROW TRANSPLANT
     Dosage: 150 MILLIGRAM
     Route: 048
     Dates: start: 201203

REACTIONS (3)
  - Incorrect dose administered [Unknown]
  - Sinusitis [Not Recovered/Not Resolved]
  - Nasopharyngitis [Not Recovered/Not Resolved]
